FAERS Safety Report 23448328 (Version 1)
Quarter: 2024Q1

REPORT INFORMATION
  Report Type: Spontaneous
  Country: GB (occurrence: GB)
  Receive Date: 20240127
  Receipt Date: 20240127
  Transmission Date: 20240410
  Serious: Yes (Hospitalization)
  Sender: FDA-Public Use
  Company Number: None

PATIENT
  Age: 81 Year
  Sex: Female
  Weight: 81 kg

DRUGS (2)
  1. AZACITIDINE [Suspect]
     Active Substance: AZACITIDINE
     Indication: Acute myeloid leukaemia
     Dosage: 140MG SC ONE A DAY FOR 7 DAYS EVERY MONTH
     Route: 058
     Dates: start: 20231113
  2. VENETOCLAX [Suspect]
     Active Substance: VENETOCLAX
     Indication: Acute myeloid leukaemia
     Dosage: 100MG OD FOR 14 DAYS EVERY MONTH
     Dates: start: 20231113

REACTIONS (2)
  - Seizure [Recovered/Resolved]
  - Torsade de pointes [Recovered/Resolved]

NARRATIVE: CASE EVENT DATE: 20240101
